FAERS Safety Report 4512951-8 (Version None)
Quarter: 2004Q4

REPORT INFORMATION
  Report Type: 
  Country: None (occurrence: None)
  Receive Date: 20041130
  Receipt Date: 20041119
  Transmission Date: 20050328
  Serious: Yes (Hospitalization)
  Sender: FDA-Public Use
  Company Number: GB-BRISTOL-MYERS SQUIBB COMPANY-12775730

PATIENT
  Age: 19 Year
  Sex: Female

DRUGS (14)
  1. CYCLOPHOSPHAMIDE [Suspect]
     Indication: STEM CELL TRANSPLANT
  2. METHOTREXATE [Suspect]
     Indication: STEM CELL TRANSPLANT
  3. MABCAMPATH [Suspect]
     Indication: STEM CELL TRANSPLANT
  4. CYCLOSPORINE [Suspect]
     Indication: PROPHYLAXIS AGAINST TRANSPLANT REJECTION
  5. LEUCOVORIN [Concomitant]
  6. CEFTRIAXONE SODIUM [Concomitant]
  7. METRONIDAZOLE [Concomitant]
  8. ALLOPURINOL [Concomitant]
  9. ACYCLOVIR [Concomitant]
  10. CIPROFLOXACIN [Concomitant]
  11. CO-TRIMOXAZOLE [Concomitant]
  12. COLISTIN SULFATE [Concomitant]
  13. ITRACONAZOLE [Concomitant]
  14. AMBISOME [Concomitant]

REACTIONS (13)
  - CANDIDA PNEUMONIA [None]
  - CANDIDIASIS [None]
  - DERMATITIS EXFOLIATIVE [None]
  - DYSPNOEA EXACERBATED [None]
  - ENTEROCOCCAL INFECTION [None]
  - ERYTHEMA [None]
  - FUNGAL SEPSIS [None]
  - FUSARIUM INFECTION [None]
  - LOCALISED INFECTION [None]
  - LOWER RESPIRATORY TRACT INFECTION [None]
  - NEUTROPENIA [None]
  - OEDEMA PERIPHERAL [None]
  - POST PROCEDURAL COMPLICATION [None]
